FAERS Safety Report 5035025-9 (Version None)
Quarter: 2006Q2

REPORT INFORMATION
  Report Type: 
  Country: None (occurrence: None)
  Receive Date: 20060622
  Receipt Date: 20060622
  Transmission Date: 20061013
  Serious: Yes (Hospitalization)
  Sender: FDA-Public Use
  Company Number: None

PATIENT
  Age: 78 Year
  Sex: Male

DRUGS (1)
  1. HALOPERIDOL [Suspect]
     Indication: AGITATION
     Dosage: 5 MG ONCE IM
     Route: 030

REACTIONS (7)
  - BLOOD CREATINE PHOSPHOKINASE INCREASED [None]
  - CHOREA [None]
  - CONVULSION [None]
  - DEHYDRATION [None]
  - NEUROLEPTIC MALIGNANT SYNDROME [None]
  - PROTEINURIA [None]
  - THERAPY NON-RESPONDER [None]
